FAERS Safety Report 16847858 (Version 1)
Quarter: 2019Q3

REPORT INFORMATION
  Report Type: Other
  Country: US (occurrence: US)
  Receive Date: 20190924
  Receipt Date: 20190924
  Transmission Date: 20191005
  Serious: No
  Sender: FDA-Public Use
  Company Number: US-ACORDA-ACO_159679_2019

PATIENT
  Age: 68 Year
  Sex: Female

DRUGS (3)
  1. INBRIJA [Suspect]
     Active Substance: LEVODOPA
     Indication: PARKINSON^S DISEASE
     Dosage: 42 MG CAPSULES / INHALE CONTENTS OF TWO CAPULES TID PRN
     Dates: start: 20190625, end: 20190625
  2. CARBIDOPA/LEVODOPA [Concomitant]
     Active Substance: CARBIDOPA\LEVODOPA
     Indication: PRODUCT USED FOR UNKNOWN INDICATION
     Dosage: UNK
     Route: 048
  3. INBRIJA [Suspect]
     Active Substance: LEVODOPA
     Indication: ON AND OFF PHENOMENON

REACTIONS (3)
  - Discomfort [Recovering/Resolving]
  - Cough [Recovering/Resolving]
  - Parkinson^s disease [Recovering/Resolving]

NARRATIVE: CASE EVENT DATE: 20190625
